FAERS Safety Report 7444498-3 (Version None)
Quarter: 2011Q2

REPORT INFORMATION
  Report Type: 
  Country: None (occurrence: None)
  Receive Date: 20110420
  Receipt Date: 20110411
  Transmission Date: 20111010
  Serious: Yes (Other)
  Sender: FDA-Public Use
  Company Number: 20109638

PATIENT
  Sex: Male

DRUGS (1)
  1. LIORESAL [Suspect]
     Indication: MUSCLE SPASTICITY
     Dosage: 374 MCG, DALY, INTRATHECAL
     Route: 037

REACTIONS (4)
  - DRUG THERAPY CHANGED [None]
  - MUSCLE TIGHTNESS [None]
  - NIGHTMARE [None]
  - CLONUS [None]
